FAERS Safety Report 14243493 (Version 1)
Quarter: 2017Q4

REPORT INFORMATION
  Report Type: Spontaneous
  Country: US (occurrence: None)
  Receive Date: 20171130
  Receipt Date: 20171130
  Transmission Date: 20180321
  Serious: No
  Sender: FDA-Public Use
  Company Number: None

PATIENT
  Sex: Female

DRUGS (1)
  1. ERIVEDGE [Suspect]
     Active Substance: VISMODEGIB
     Indication: BASAL CELL CARCINOMA
     Route: 048
     Dates: start: 201711

REACTIONS (7)
  - Ageusia [None]
  - Fracture [None]
  - Constipation [None]
  - Dehydration [None]
  - Decreased appetite [None]
  - Diarrhoea [None]
  - Fall [None]
